FAERS Safety Report 9543619 (Version 1)
Quarter: 2013Q2

REPORT INFORMATION
  Report Type: Spontaneous
  Country: US (occurrence: None)
  Receive Date: 20130524
  Receipt Date: 20130524
  Transmission Date: 20140414
  Serious: Yes (Other)
  Sender: FDA-Public Use
  Company Number: PHEH2012US025263

PATIENT
  Age: 50 Year
  Sex: Female
  Weight: 69.8 kg

DRUGS (4)
  1. GILENYA [Suspect]
     Route: 048
     Dates: start: 20121220
  2. ZYTTEC ALLERGY (CETIRIZINE HYDROCHLORIDE) [Concomitant]
  3. FLAXSEED OIL (LINUM USITATISSIMUM SEED OIL) [Concomitant]
  4. VITAMIN C [Concomitant]

REACTIONS (2)
  - Heart rate decreased [None]
  - Chest discomfort [None]
